FAERS Safety Report 9759675 (Version 1)
Quarter: 2013Q4

REPORT INFORMATION
  Report Type: Spontaneous
  Country: US (occurrence: US)
  Receive Date: 20131216
  Receipt Date: 20131216
  Transmission Date: 20140711
  Serious: No
  Sender: FDA-Public Use
  Company Number: US-GILEAD-2010-0028601

PATIENT
  Sex: Female
  Weight: 58.51 kg

DRUGS (8)
  1. LETAIRIS [Suspect]
     Indication: PULMONARY ARTERIAL HYPERTENSION
     Route: 048
     Dates: start: 20080731
  2. LASIX [Concomitant]
  3. K-DUR [Concomitant]
  4. REVATIO [Concomitant]
  5. OXYGEN [Concomitant]
  6. METOLAZONE [Concomitant]
  7. PRILOSEC [Concomitant]
  8. ACETAMIN [Concomitant]

REACTIONS (1)
  - Syncope [Unknown]
